FAERS Safety Report 17050581 (Version 1)
Quarter: 2019Q4

REPORT INFORMATION
  Report Type: Spontaneous
  Country: CN (occurrence: CN)
  Receive Date: 20191119
  Receipt Date: 20191119
  Transmission Date: 20200122
  Serious: Yes (Life-Threatening)
  Sender: FDA-Public Use
  Company Number: CN-BAXTER-2019BAX023011

PATIENT
  Age: 58 Year
  Sex: Female
  Weight: 60 kg

DRUGS (2)
  1. 20% MANNITOL INJECTION [Suspect]
     Active Substance: MANNITOL
     Indication: SWELLING
     Dosage: INJECTION
     Route: 041
     Dates: start: 20191023, end: 20191027
  2. COMPOUND DEXTRAN 40 [CALCIUM CHLORIDE\DEXTRAN 40\POTASSIUM CHLORIDE\SODIUM CHLORIDE\SODIUM LACTATE] [Suspect]
     Active Substance: CALCIUM CHLORIDE\DEXTRAN 40\POTASSIUM CHLORIDE\SODIUM CHLORIDE\SODIUM LACTATE
     Indication: CARDIOVASCULAR DISORDER
     Route: 041
     Dates: start: 20191023, end: 20191027

REACTIONS (3)
  - Discomfort [Recovering/Resolving]
  - Dyspnoea [Recovering/Resolving]
  - Chills [Recovering/Resolving]

NARRATIVE: CASE EVENT DATE: 201910
